FAERS Safety Report 25439181 (Version 1)
Quarter: 2025Q2

REPORT INFORMATION
  Report Type: Report from Study
  Country: NL (occurrence: NL)
  Receive Date: 20250616
  Receipt Date: 20250616
  Transmission Date: 20250716
  Serious: Yes (Death, Other)
  Sender: SANOFI AVENTIS
  Company Number: NL-DialogSolutions-SAAVPROD-PI787442-C1

PATIENT
  Age: 51 Year
  Sex: Female

DRUGS (2)
  1. LEFLUNOMIDE [Suspect]
     Active Substance: LEFLUNOMIDE
     Indication: Polyarthritis
  2. LEFLUNOMIDE [Suspect]
     Active Substance: LEFLUNOMIDE
     Dosage: 20 MG, QD

REACTIONS (4)
  - Multiple organ dysfunction syndrome [Fatal]
  - Cutaneous vasculitis [Unknown]
  - Skin necrosis [Unknown]
  - Nail necrosis [Unknown]
